FAERS Safety Report 16218042 (Version 2)
Quarter: 2019Q2

REPORT INFORMATION
  Report Type: Spontaneous
  Country: ES (occurrence: ES)
  Receive Date: 20190419
  Receipt Date: 20190521
  Transmission Date: 20190711
  Serious: Yes (Hospitalization, Disabling, Other)
  Sender: FDA-Public Use
  Company Number: PHHY2019ES086193

PATIENT
  Age: 56 Year
  Sex: Male

DRUGS (7)
  1. QUETIAPINE. [Concomitant]
     Active Substance: QUETIAPINE
     Indication: AGITATION
     Dosage: 600 MG, QD
     Route: 065
  2. QUETIAPINE. [Concomitant]
     Active Substance: QUETIAPINE
     Indication: MANIA
     Dosage: 1000 MG, QD
     Route: 065
  3. QUETIAPINE. [Concomitant]
     Active Substance: QUETIAPINE
     Dosage: 600 MG, QD
     Route: 065
  4. RISPERIDONE. [Suspect]
     Active Substance: RISPERIDONE
     Indication: AGITATION
     Dosage: 6 MG, QD
     Route: 065
  5. CLONAZEPAM. [Concomitant]
     Active Substance: CLONAZEPAM
     Dosage: 6 MG, QD
     Route: 065
  6. LITHIUM. [Suspect]
     Active Substance: LITHIUM
     Indication: MANIA
     Dosage: 1200 MG, QD
     Route: 065
  7. CLONAZEPAM. [Concomitant]
     Active Substance: CLONAZEPAM
     Indication: MANIA
     Dosage: 2 MG, QD
     Route: 065

REACTIONS (18)
  - Disturbance in attention [Recovering/Resolving]
  - Cognitive disorder [Recovered/Resolved]
  - Disorientation [Recovered/Resolved]
  - Hallucination, visual [Unknown]
  - Pulmonary embolism [Unknown]
  - Neurotoxicity [Recovered/Resolved]
  - Psychomotor hyperactivity [Unknown]
  - Encephalopathy [Recovered/Resolved]
  - Anal incontinence [Unknown]
  - Dysarthria [Unknown]
  - Delirium [Recovering/Resolving]
  - Status epilepticus [Unknown]
  - Myoclonus [Unknown]
  - Amnesia [Recovering/Resolving]
  - Ataxia [Unknown]
  - Dementia [Recovered/Resolved]
  - Altered state of consciousness [Recovered/Resolved]
  - Dysphagia [Unknown]
